FAERS Safety Report 9328855 (Version 1)
Quarter: 2013Q2

REPORT INFORMATION
  Report Type: Spontaneous
  Country: US (occurrence: US)
  Receive Date: 20130604
  Receipt Date: 20130604
  Transmission Date: 20140414
  Serious: No
  Sender: FDA-Public Use
  Company Number: US-SANOFI-AVENTIS-2013SA018746

PATIENT
  Age: 53 Year
  Sex: Male
  Weight: 136 kg

DRUGS (14)
  1. LANTUS [Suspect]
     Dosage: DOSE:25 UNIT(S)
     Route: 051
  2. PODOFILOX [Suspect]
     Indication: PRURITUS
     Dates: start: 20121116, end: 20121116
  3. METFORMIN [Suspect]
     Route: 048
  4. IBUPROFEN [Suspect]
     Route: 048
  5. FISH OIL [Suspect]
     Route: 048
  6. ASPIRIN [Suspect]
     Route: 048
  7. RANITIDINE [Suspect]
     Route: 048
  8. CILOSTAZOL [Suspect]
     Route: 048
  9. ATORVASTATIN [Suspect]
  10. CARVEDILOL [Suspect]
  11. FENOFIBRATE [Suspect]
  12. LISINOPRIL [Suspect]
  13. HYDROCHLOROTHIAZIDE [Suspect]
     Route: 048
  14. HUMALOG [Suspect]

REACTIONS (4)
  - Application site pain [Not Recovered/Not Resolved]
  - Tremor [Recovering/Resolving]
  - Hypersensitivity [Unknown]
  - Drug interaction [Unknown]
